FAERS Safety Report 6235838-1 (Version None)
Quarter: 2009Q2

REPORT INFORMATION
  Report Type: 
  Country: None (occurrence: None)
  Receive Date: 20090617
  Receipt Date: 20090617
  Transmission Date: 20091009
  Serious: No
  Sender: FDA-Public Use
  Company Number: None

PATIENT
  Age: 65 Year
  Sex: Male
  Weight: 77.1115 kg

DRUGS (1)
  1. ZICAN NASAL GEL [Suspect]
     Indication: NASOPHARYNGITIS
     Dosage: 1 SQUIRT 1-2 TIMED DAY X 3 NASAL
     Route: 045
     Dates: start: 20040201, end: 20060101

REACTIONS (1)
  - ANOSMIA [None]
